FAERS Safety Report 4791499-X (Version None)
Quarter: 2005Q4

REPORT INFORMATION
  Report Type: 
  Country: None (occurrence: None)
  Receive Date: 20051007
  Receipt Date: 20041109
  Transmission Date: 20060501
  Serious: No
  Sender: FDA-Public Use
  Company Number: US-BRISTOL-MYERS SQUIBB COMPANY-12759924

PATIENT
  Sex: Female

DRUGS (3)
  1. APROVEL TABS 150 MG [Suspect]
     Route: 048
     Dates: start: 20041101
  2. PROVERA [Concomitant]
  3. LISINOPRIL [Concomitant]

REACTIONS (1)
  - COUGH [None]
